FAERS Safety Report 5914923-5 (Version None)
Quarter: 2008Q4

REPORT INFORMATION
  Report Type: 
  Country: None (occurrence: None)
  Receive Date: 20081010
  Receipt Date: 20081001
  Transmission Date: 20090506
  Serious: Yes (Death, Other)
  Sender: FDA-Public Use
  Company Number: JP-ELI_LILLY_AND_COMPANY-JP200807000875

PATIENT
  Sex: Male
  Weight: 62.8 kg

DRUGS (5)
  1. GEMZAR [Suspect]
     Indication: PANCREATIC CARCINOMA STAGE IV
     Dosage: 1700 MG, OTHER
     Route: 042
     Dates: start: 20070814, end: 20070814
  2. TS 1 /JPN/ [Concomitant]
     Indication: PANCREATIC CARCINOMA STAGE IV
     Dosage: 50 MG, 2/D
     Route: 048
     Dates: start: 20070807, end: 20070817
  3. GASTER D /JPN/ [Concomitant]
     Indication: PROPHYLAXIS
     Dosage: 10 MG, 2/D
     Route: 048
     Dates: start: 20070731
  4. SEPAMIT [Concomitant]
     Indication: HYPERTENSION
     Dosage: 10 MG, 2/D
     Route: 048
     Dates: start: 20070731
  5. MYSLEE [Concomitant]
     Indication: INSOMNIA
     Dosage: 5 MG, DAILY (1/D)
     Route: 048
     Dates: start: 20070731

REACTIONS (4)
  - HAEMOTHORAX [None]
  - HICCUPS [None]
  - MALIGNANT NEOPLASM PROGRESSION [None]
  - MALIGNANT PLEURAL EFFUSION [None]
